FAERS Safety Report 14363365 (Version 1)
Quarter: 2018Q1

REPORT INFORMATION
  Report Type: Report from Study
  Country: BE (occurrence: BE)
  Receive Date: 20180108
  Receipt Date: 20180108
  Transmission Date: 20180509
  Serious: Yes (Hospitalization, Other)
  Sender: FDA-Public Use
  Company Number: BE-BRISTOL-MYERS SQUIBB COMPANY-BMS-2016-081760

PATIENT
  Age: 66 Year
  Sex: Male

DRUGS (5)
  1. DAFALGAN [Concomitant]
     Active Substance: ACETAMINOPHEN
     Indication: PRODUCT USED FOR UNKNOWN INDICATION
     Dosage: 1 G, PRN
     Route: 065
  2. LYSOMUCIL [Concomitant]
     Active Substance: ACETYLCYSTEINE
     Indication: PRODUCT USED FOR UNKNOWN INDICATION
     Dosage: 600 MG, QD
     Route: 065
  3. NIVOLUMAB [Suspect]
     Active Substance: NIVOLUMAB
     Indication: RENAL CELL CARCINOMA
     Dosage: 3 MG/KG, Q2WK
     Route: 065
     Dates: start: 20160825
  4. LOSFERRON                          /00023502/ [Concomitant]
     Indication: PRODUCT USED FOR UNKNOWN INDICATION
     Route: 065
  5. NIVOLUMAB [Suspect]
     Active Substance: NIVOLUMAB
     Indication: PRODUCT USED FOR UNKNOWN INDICATION
     Dosage: 3 MG/KG, Q2WK
     Route: 065
     Dates: start: 20160926

REACTIONS (14)
  - Malignant neoplasm progression [Unknown]
  - Pleural effusion [Unknown]
  - Dyspnoea [Recovered/Resolved]
  - Hypervolaemia [Unknown]
  - Stasis dermatitis [Unknown]
  - Enterobacter infection [Unknown]
  - Headache [Unknown]
  - Faeces discoloured [Unknown]
  - Nail disorder [Unknown]
  - Malignant pleural effusion [Unknown]
  - Lymphangiosis carcinomatosa [Unknown]
  - Diastolic dysfunction [Unknown]
  - Chronic kidney disease [Unknown]
  - Muscle spasms [Unknown]

NARRATIVE: CASE EVENT DATE: 20160911
